FAERS Safety Report 25371097 (Version 3)
Quarter: 2025Q2

REPORT INFORMATION
  Report Type: Spontaneous
  Country: JP (occurrence: JP)
  Receive Date: 20250529
  Receipt Date: 20250624
  Transmission Date: 20250716
  Serious: No
  Sender: ALEXION PHARMACEUTICALS
  Company Number: JP-ASTRAZENECA-250042244_013020_P_1

PATIENT
  Age: 6 Decade

DRUGS (4)
  1. OSIMERTINIB [Suspect]
     Active Substance: OSIMERTINIB
     Indication: Non-small cell lung cancer
     Dosage: 80 MILLIGRAM, QD
  2. OSIMERTINIB [Suspect]
     Active Substance: OSIMERTINIB
     Dosage: 80 MILLIGRAM, QD
  3. CISPLATIN [Concomitant]
     Active Substance: CISPLATIN
     Route: 065
  4. PEMETREXED [Concomitant]
     Active Substance: PEMETREXED
     Route: 065

REACTIONS (2)
  - Dry skin [Unknown]
  - Pruritus [Unknown]
